FAERS Safety Report 14837019 (Version 2)
Quarter: 2018Q4

REPORT INFORMATION
  Report Type: Spontaneous
  Country: FR (occurrence: FR)
  Receive Date: 20180502
  Receipt Date: 20181024
  Transmission Date: 20190204
  Serious: Yes (Hospitalization)
  Sender: FDA-Public Use
  Company Number: FR-MERCK KGAA-2046991

PATIENT
  Age: 60 Year
  Sex: Female

DRUGS (1)
  1. EUTHYROX [Suspect]
     Active Substance: LEVOTHYROXINE SODIUM
     Indication: AUTOIMMUNE THYROIDITIS
     Dates: start: 201705

REACTIONS (20)
  - Impaired driving ability [None]
  - Tachycardia [None]
  - Asthenia [None]
  - Pain in extremity [None]
  - Muscle spasms [None]
  - Fear [None]
  - Decreased interest [None]
  - Alopecia [None]
  - Impaired work ability [None]
  - Dizziness [None]
  - Fatigue [None]
  - Blood glucose increased [None]
  - Anxiety [None]
  - Blood thyroid stimulating hormone increased [None]
  - Loss of personal independence in daily activities [None]
  - Depression [None]
  - Muscle contracture [None]
  - Balance disorder [None]
  - Psychiatric symptom [None]
  - Stress [None]

NARRATIVE: CASE EVENT DATE: 201705
